FAERS Safety Report 4470011-9 (Version None)
Quarter: 2004Q3

REPORT INFORMATION
  Report Type: 
  Country: None (occurrence: None)
  Receive Date: 20040920
  Receipt Date: 20040524
  Transmission Date: 20050211
  Serious: No
  Sender: FDA-Public Use
  Company Number: PHEH2004US05734

PATIENT
  Sex: 0

DRUGS (1)
  1. ZOMETA [Suspect]
     Indication: MULTIPLE MYELOMA
     Dosage: 4 MG, QMO, INTRAVENOUS
     Route: 042

REACTIONS (1)
  - ORAL SOFT TISSUE DISORDER [None]
